FAERS Safety Report 9928807 (Version 1)
Quarter: 2014Q1

REPORT INFORMATION
  Report Type: Spontaneous
  Country: AT (occurrence: AT)
  Receive Date: 20140227
  Receipt Date: 20140227
  Transmission Date: 20141002
  Serious: Yes (Life-Threatening)
  Sender: FDA-Public Use
  Company Number: AT-BAYER-2014-030480

PATIENT
  Age: 74 Year
  Sex: 0

DRUGS (1)
  1. ULTRAVIST [Suspect]
     Indication: PULMONARY EMBOLISM
     Dosage: 80 ML (5ML/SEC)
     Route: 042
     Dates: start: 20140226, end: 20140226

REACTIONS (4)
  - Nausea [Not Recovered/Not Resolved]
  - Vomiting [Not Recovered/Not Resolved]
  - Dermatitis exfoliative [Not Recovered/Not Resolved]
  - Convulsion [Not Recovered/Not Resolved]
